FAERS Safety Report 9566674 (Version 1)
Quarter: 2013Q3

REPORT INFORMATION
  Report Type: Spontaneous
  Country: US (occurrence: US)
  Receive Date: 20130930
  Receipt Date: 20130930
  Transmission Date: 20140515
  Serious: No
  Sender: FDA-Public Use
  Company Number: US-AMGEN-USASP2012061308

PATIENT
  Age: 54 Year
  Sex: Female
  Weight: 104.31 kg

DRUGS (8)
  1. ENBREL [Suspect]
     Indication: PRODUCT USED FOR UNKNOWN INDICATION
     Dosage: 25 MG, 2 TIMES/WK
     Route: 058
  2. CENTRUM                            /02217401/ [Concomitant]
     Dosage: SILVER
  3. OMEGA-3                            /01866101/ [Concomitant]
     Dosage: 1000 MG, UNK
  4. VITAMIN-B COMPLEX [Concomitant]
     Dosage: UNK
  5. CALCIUM W/MAGNESIUM [Concomitant]
     Dosage: UNK
  6. FISH OIL [Concomitant]
     Dosage: UNK
  7. XANAX [Concomitant]
     Dosage: 0.25 MG, UNK
  8. AZITHROMYCIN [Concomitant]
     Dosage: 250 MG, UNK

REACTIONS (1)
  - Upper respiratory tract infection [Unknown]
